FAERS Safety Report 17618556 (Version 2)
Quarter: 2021Q1

REPORT INFORMATION
  Report Type: Spontaneous
  Country: US (occurrence: US)
  Receive Date: 20200402
  Receipt Date: 20210330
  Transmission Date: 20210419
  Serious: No
  Sender: FDA-Public Use
  Company Number: US-ROCHE-2507764

PATIENT
  Sex: Female

DRUGS (1)
  1. ERIVEDGE [Suspect]
     Active Substance: VISMODEGIB
     Indication: CONGENITAL ANOMALY
     Dosage: DAILY
     Route: 048
     Dates: start: 20190715

REACTIONS (5)
  - Intentional product use issue [Unknown]
  - Off label use [Unknown]
  - Rash erythematous [Unknown]
  - Alopecia [Not Recovered/Not Resolved]
  - Madarosis [Unknown]
